FAERS Safety Report 5056298-2 (Version None)
Quarter: 2006Q3

REPORT INFORMATION
  Report Type: 
  Country: None (occurrence: None)
  Receive Date: 20060717
  Receipt Date: 20060630
  Transmission Date: 20061208
  Serious: Yes (Hospitalization)
  Sender: FDA-Public Use
  Company Number: DSA_28405_2006

PATIENT
  Age: 85 Year
  Sex: Male

DRUGS (6)
  1. ENALAPRIL MALEATE AND HYDROCHLOROTHIAZIDE [Suspect]
     Indication: HYPERTENSION
     Dosage: 1 DF QD PO
     Route: 048
     Dates: start: 20010101, end: 20060405
  2. ASPIRIN LYSINE [Concomitant]
  3. ETIFOXINE HCL [Concomitant]
  4. LACTULOSE [Concomitant]
  5. TRIMETAZIDINE HYDROCHLORIDE [Concomitant]
  6. ZOPICLONE [Concomitant]

REACTIONS (3)
  - ABDOMINAL PAIN LOWER [None]
  - PSEUDOLYMPHOMA [None]
  - PYREXIA [None]
